FAERS Safety Report 7724099-X (Version None)
Quarter: 2011Q3

REPORT INFORMATION
  Report Type: 
  Country: None (occurrence: None)
  Receive Date: 20110901
  Receipt Date: 20110829
  Transmission Date: 20111222
  Serious: Yes (Death)
  Sender: FDA-Public Use
  Company Number: US-ASTRAZENECA-2009UW00600

PATIENT
  Age: 16813 Day
  Sex: Female
  Weight: 83 kg

DRUGS (7)
  1. ZYPREXA [Concomitant]
     Dates: start: 20050101
  2. RISPERDAL [Concomitant]
     Dosage: 1 MG TO 2 MG
     Dates: start: 20040603, end: 20070821
  3. ABILIFY [Concomitant]
     Dates: start: 20070101
  4. SEROQUEL [Suspect]
     Indication: BIPOLAR DISORDER
     Dosage: 100 MG TO 300 MG
     Route: 048
     Dates: start: 20050101, end: 20070101
  5. GEODON [Concomitant]
     Dates: start: 20051007, end: 20070409
  6. PROZAC [Concomitant]
     Dates: start: 20020208, end: 20050912
  7. PHENTERMINE [Concomitant]
     Dates: start: 20050101

REACTIONS (3)
  - DEATH [None]
  - OBESITY [None]
  - TYPE 2 DIABETES MELLITUS [None]
